FAERS Safety Report 16312722 (Version 5)
Quarter: 2022Q3

REPORT INFORMATION
  Report Type: Spontaneous
  Country: US (occurrence: None)
  Receive Date: 20190515
  Receipt Date: 20220923
  Transmission Date: 20221027
  Serious: Yes (Hospitalization, Other)
  Sender: FDA-Public Use
  Company Number: 2019SE67052

PATIENT
  Age: 18541 Day
  Sex: Female

DRUGS (67)
  1. NEXIUM [Suspect]
     Active Substance: ESOMEPRAZOLE MAGNESIUM
     Indication: Gastrooesophageal reflux disease
     Route: 048
     Dates: start: 200602, end: 201702
  2. NEXIUM [Suspect]
     Active Substance: ESOMEPRAZOLE MAGNESIUM
     Indication: Hiatus hernia
     Route: 048
     Dates: start: 200602, end: 201702
  3. NEXIUM [Suspect]
     Active Substance: ESOMEPRAZOLE MAGNESIUM
     Indication: Gastrooesophageal reflux disease
     Route: 048
     Dates: start: 2002, end: 2017
  4. NEXIUM [Suspect]
     Active Substance: ESOMEPRAZOLE MAGNESIUM
     Indication: Hiatus hernia
     Route: 048
     Dates: start: 2002, end: 2017
  5. NEXIUM 24HR [Suspect]
     Active Substance: ESOMEPRAZOLE MAGNESIUM
     Indication: Gastrooesophageal reflux disease
     Route: 048
     Dates: start: 200602, end: 201702
  6. NEXIUM 24HR [Suspect]
     Active Substance: ESOMEPRAZOLE MAGNESIUM
     Indication: Hiatus hernia
     Route: 048
     Dates: start: 200602, end: 201702
  7. NEXIUM 24HR [Suspect]
     Active Substance: ESOMEPRAZOLE MAGNESIUM
     Indication: Gastrooesophageal reflux disease
     Route: 048
     Dates: start: 2014, end: 2017
  8. NEXIUM 24HR [Suspect]
     Active Substance: ESOMEPRAZOLE MAGNESIUM
     Indication: Hiatus hernia
     Route: 048
     Dates: start: 2014, end: 2017
  9. PRILOSEC [Suspect]
     Active Substance: OMEPRAZOLE MAGNESIUM
     Indication: Gastrooesophageal reflux disease
     Route: 048
     Dates: start: 200602, end: 201702
  10. PRILOSEC [Suspect]
     Active Substance: OMEPRAZOLE MAGNESIUM
     Indication: Hiatus hernia
     Route: 048
     Dates: start: 200602, end: 201702
  11. PRILOSEC [Suspect]
     Active Substance: OMEPRAZOLE MAGNESIUM
     Indication: Gastrooesophageal reflux disease
     Route: 048
     Dates: start: 2006, end: 2017
  12. PRILOSEC [Suspect]
     Active Substance: OMEPRAZOLE MAGNESIUM
     Indication: Hiatus hernia
     Route: 048
     Dates: start: 2006, end: 2017
  13. PRILOSEC [Suspect]
     Active Substance: OMEPRAZOLE MAGNESIUM
     Indication: Gastrooesophageal reflux disease
     Route: 048
     Dates: start: 2002
  14. PRILOSEC [Suspect]
     Active Substance: OMEPRAZOLE MAGNESIUM
     Indication: Hiatus hernia
     Route: 048
     Dates: start: 2002
  15. PRILOSEC OTC [Suspect]
     Active Substance: OMEPRAZOLE MAGNESIUM
     Indication: Gastrooesophageal reflux disease
     Route: 048
     Dates: start: 200602, end: 201702
  16. PRILOSEC OTC [Suspect]
     Active Substance: OMEPRAZOLE MAGNESIUM
     Indication: Hiatus hernia
     Route: 048
     Dates: start: 200602, end: 201702
  17. PRILOSEC OTC [Suspect]
     Active Substance: OMEPRAZOLE MAGNESIUM
     Indication: Gastrooesophageal reflux disease
     Route: 048
     Dates: start: 2006
  18. PRILOSEC OTC [Suspect]
     Active Substance: OMEPRAZOLE MAGNESIUM
     Indication: Hiatus hernia
     Route: 048
     Dates: start: 2006
  19. PRILOSEC OTC [Suspect]
     Active Substance: OMEPRAZOLE MAGNESIUM
     Indication: Gastrooesophageal reflux disease
     Route: 048
     Dates: start: 20170119
  20. PRILOSEC OTC [Suspect]
     Active Substance: OMEPRAZOLE MAGNESIUM
     Indication: Hiatus hernia
     Route: 048
     Dates: start: 20170119
  21. PEPCID [Suspect]
     Active Substance: FAMOTIDINE
     Route: 065
  22. CIPROFLOXACIN [Concomitant]
     Active Substance: CIPROFLOXACIN
     Indication: Infection
     Route: 067
     Dates: start: 20180830, end: 20180907
  23. HYDRALAZINE [Concomitant]
     Active Substance: HYDRALAZINE HYDROCHLORIDE
     Indication: Hypertension
     Route: 065
     Dates: start: 20181025, end: 20190420
  24. ROSUVASTATIN [Concomitant]
     Active Substance: ROSUVASTATIN
     Indication: Blood cholesterol increased
     Route: 065
     Dates: start: 20181025, end: 20190420
  25. SPIRONOLACTONE [Concomitant]
     Active Substance: SPIRONOLACTONE
     Indication: Congenital cystic kidney disease
     Route: 065
     Dates: start: 20181107, end: 20190422
  26. LEVOTHYROXINE [Concomitant]
     Active Substance: LEVOTHYROXINE
     Indication: Thyroid disorder
     Route: 065
     Dates: start: 20181021, end: 20190121
  27. PREDNISONE [Concomitant]
     Active Substance: PREDNISONE
     Indication: Arthritis
     Route: 065
     Dates: start: 20190422, end: 20190522
  28. VITAMIN D [Concomitant]
     Active Substance: VITAMIN D NOS
     Indication: Vitamin D deficiency
     Route: 065
     Dates: start: 2017, end: 2020
  29. FISH OIL [Concomitant]
     Active Substance: FISH OIL
     Indication: Nutritional supplementation
     Route: 065
     Dates: start: 2017
  30. ZYRTEC [Concomitant]
     Active Substance: CETIRIZINE HYDROCHLORIDE
     Indication: Hypersensitivity
     Route: 065
     Dates: start: 2017
  31. ALKA-SELTZER [Concomitant]
     Active Substance: ANHYDROUS CITRIC ACID\ASPIRIN\SODIUM BICARBONATE
     Route: 065
     Dates: start: 2010
  32. ULORIC [Concomitant]
     Active Substance: FEBUXOSTAT
     Route: 065
     Dates: start: 20181023
  33. COREG [Concomitant]
     Active Substance: CARVEDILOL
     Route: 065
     Dates: start: 20170119
  34. LASIX [Concomitant]
     Active Substance: FUROSEMIDE
     Route: 065
     Dates: start: 20170119
  35. COZAAR [Concomitant]
     Active Substance: LOSARTAN POTASSIUM
     Route: 065
     Dates: start: 20170119
  36. CALCITRIOL [Concomitant]
     Active Substance: CALCITRIOL
     Route: 065
     Dates: start: 20170119
  37. COLCRYS [Concomitant]
     Active Substance: COLCHICINE
     Route: 065
     Dates: start: 20170119
  38. ZANTAC [Concomitant]
     Active Substance: RANITIDINE HYDROCHLORIDE
     Route: 065
     Dates: start: 20170427
  39. SYNTHROID [Concomitant]
     Active Substance: LEVOTHYROXINE SODIUM
  40. VITAMIN D3 [Concomitant]
     Active Substance: CHOLECALCIFEROL
  41. FUROSEMIDE [Concomitant]
     Active Substance: FUROSEMIDE
  42. ESTRADIOL [Concomitant]
     Active Substance: ESTRADIOL
  43. LISINOPRIL [Concomitant]
     Active Substance: LISINOPRIL
  44. OXYCOD [Concomitant]
  45. DIGITEK [Concomitant]
     Active Substance: DIGOXIN
  46. KLOR-CON [Concomitant]
     Active Substance: POTASSIUM CHLORIDE
  47. TRICOR [Concomitant]
     Active Substance: FENOFIBRATE
  48. NIASPAN [Concomitant]
     Active Substance: NIACIN
  49. INDOMETHACIN [Concomitant]
     Active Substance: INDOMETHACIN
  50. CLINDAMYCIN [Concomitant]
     Active Substance: CLINDAMYCIN
  51. ASPIRIN [Concomitant]
     Active Substance: ASPIRIN
  52. CARVEDILOL [Concomitant]
     Active Substance: CARVEDILOL
  53. CETIRIZINE HYDROCHLORIDE [Concomitant]
     Active Substance: CETIRIZINE HYDROCHLORIDE
  54. NASTURTIUM OFFICINALE/SODIUM SULFATE/MYOSOTIS ARVENSIS/GERANIUM ROBERT [Concomitant]
  55. ONDANSETRON [Concomitant]
     Active Substance: ONDANSETRON
  56. RAYALDEE [Concomitant]
     Active Substance: CALCIFEDIOL
  57. ROSUVASTATIN [Concomitant]
     Active Substance: ROSUVASTATIN
  58. ISOSORBIDE MONOTITRATE [Concomitant]
  59. FERROUS SULFATE [Concomitant]
     Active Substance: FERROUS SULFATE
  60. FAMOTIDINE [Concomitant]
     Active Substance: FAMOTIDINE
  61. OMEGA-3 FATTY ACIDS [Concomitant]
     Active Substance: OMEGA-3 FATTY ACIDS
  62. APRESOLINE HYDROCHLORIDE [Concomitant]
     Active Substance: HYDRALAZINE HYDROCHLORIDE
  63. APRESOLINE HYDROCHLORIDE [Concomitant]
     Active Substance: HYDRALAZINE HYDROCHLORIDE
  64. SIMCOR [Concomitant]
     Active Substance: NIACIN\SIMVASTATIN
  65. FLUROSEMIDE [Concomitant]
  66. LOVAZA [Concomitant]
     Active Substance: OMEGA-3-ACID ETHYL ESTERS
  67. LOSARTAN POTASSIUM [Concomitant]
     Active Substance: LOSARTAN POTASSIUM

REACTIONS (8)
  - Acute kidney injury [Not Recovered/Not Resolved]
  - Chronic kidney disease [Not Recovered/Not Resolved]
  - End stage renal disease [Unknown]
  - Hyperparathyroidism secondary [Unknown]
  - Vitamin D deficiency [Unknown]
  - Tubulointerstitial nephritis [Unknown]
  - Gastrooesophageal reflux disease [Not Recovered/Not Resolved]
  - Hiatus hernia [Not Recovered/Not Resolved]

NARRATIVE: CASE EVENT DATE: 20071115
